FAERS Safety Report 7945190-9 (Version None)
Quarter: 2011Q4

REPORT INFORMATION
  Report Type: 
  Country: None (occurrence: None)
  Receive Date: 20111129
  Receipt Date: 20111117
  Transmission Date: 20120403
  Serious: Yes (Other)
  Sender: FDA-Public Use
  Company Number: MX-SANOFI-AVENTIS-2011SA076090

PATIENT
  Age: 62 Year
  Sex: Female
  Weight: 72 kg

DRUGS (9)
  1. CARVEDILOL [Concomitant]
     Route: 048
     Dates: start: 20090101
  2. METFORMIN HCL [Concomitant]
     Indication: TYPE 2 DIABETES MELLITUS
     Route: 048
     Dates: start: 19900101
  3. DIGOXIN [Concomitant]
     Route: 048
     Dates: start: 20090101
  4. ATORVASTATIN [Concomitant]
     Route: 048
  5. INSULIN GLARGINE [Suspect]
     Indication: TYPE 2 DIABETES MELLITUS
     Route: 058
     Dates: start: 20060101
  6. ATORVASTATIN [Concomitant]
     Route: 048
  7. LEVOTHYROXINE SODIUM [Concomitant]
     Indication: HYPERTHYROIDISM
     Route: 048
  8. METOPROLOL TARTRATE [Concomitant]
     Route: 048
     Dates: start: 19890101
  9. GLYBURIDE [Concomitant]
     Indication: TYPE 2 DIABETES MELLITUS
     Route: 048
     Dates: start: 19900101

REACTIONS (7)
  - MYOCARDIAL INFARCTION [None]
  - WEIGHT DECREASED [None]
  - HYPOGLYCAEMIA [None]
  - HYPERGLYCAEMIA [None]
  - HYPERHIDROSIS [None]
  - TREMOR [None]
  - GLYCOSYLATED HAEMOGLOBIN INCREASED [None]
